FAERS Safety Report 12345633 (Version 1)
Quarter: 2016Q2

REPORT INFORMATION
  Report Type: Spontaneous
  Country: FI (occurrence: FI)
  Receive Date: 20160509
  Receipt Date: 20160509
  Transmission Date: 20160815
  Serious: Yes (Life-Threatening)
  Sender: FDA-Public Use
  Company Number: FI-HOSPIRA-3277853

PATIENT
  Age: 85 Year
  Sex: Male
  Weight: 70 kg

DRUGS (2)
  1. SERENACE [Suspect]
     Active Substance: HALOPERIDOL
     Indication: RESTLESSNESS
     Route: 065
  2. DEXDOR [Suspect]
     Active Substance: DEXMEDETOMIDINE HYDROCHLORIDE
     Indication: PRODUCT USED FOR UNKNOWN INDICATION
     Dosage: 0.7-0.9UG/KG/H, 12-16 ML/H
     Route: 065
     Dates: start: 201604

REACTIONS (2)
  - Cardiac arrest [Unknown]
  - Respiratory arrest [Unknown]

NARRATIVE: CASE EVENT DATE: 201604
